FAERS Safety Report 22123195 (Version 1)
Quarter: 2023Q1

REPORT INFORMATION
  Report Type: Spontaneous
  Country: US (occurrence: US)
  Receive Date: 20230322
  Receipt Date: 20230322
  Transmission Date: 20230417
  Serious: No
  Sender: FDA-Public Use
  Company Number: US-ASCENDIS PHARMA-2023US001714

PATIENT

DRUGS (5)
  1. SKYTROFA [Suspect]
     Active Substance: LONAPEGSOMATROPIN-TCGD
     Indication: Growth disorder
     Dosage: 7.6 MILLIGRAM, WEEKLY
     Route: 058
     Dates: end: 20230220
  2. SKYTROFA [Suspect]
     Active Substance: LONAPEGSOMATROPIN-TCGD
     Indication: Hypopituitarism
     Dosage: 6.3 UNK, WEEKLY
     Route: 058
     Dates: start: 20230220
  3. SKYTROFA [Suspect]
     Active Substance: LONAPEGSOMATROPIN-TCGD
     Indication: Neoplasm malignant
  4. CICLOPIROX [Concomitant]
     Active Substance: CICLOPIROX
     Dosage: 0.77% GEL
  5. ESTRADIOL [Concomitant]
     Active Substance: ESTRADIOL
     Dosage: UNK, WEEKLY

REACTIONS (5)
  - Device malfunction [Unknown]
  - Wrong technique in product usage process [Unknown]
  - Incorrect dose administered [Unknown]
  - Product dose omission in error [Unknown]
  - Injection site pain [Recovered/Resolved]

NARRATIVE: CASE EVENT DATE: 20230209
